FAERS Safety Report 8458036-X (Version None)
Quarter: 2012Q2

REPORT INFORMATION
  Report Type: 
  Country: None (occurrence: None)
  Receive Date: 20120622
  Receipt Date: 20120612
  Transmission Date: 20120825
  Serious: Yes (Other)
  Sender: FDA-Public Use
  Company Number: US-JNJFOC-20100901550

PATIENT
  Sex: Male

DRUGS (8)
  1. ABIRATERONE ACETATE [Suspect]
     Route: 048
  2. PREDNISONE [Suspect]
     Indication: PROSTATE CANCER
     Route: 048
     Dates: start: 20100409, end: 20100817
  3. ASPIRIN [Concomitant]
     Route: 048
     Dates: start: 20090618
  4. FLUTICASONE PROPIONATE [Concomitant]
     Indication: ASTHMA
     Route: 055
     Dates: start: 20090409
  5. ABIRATERONE ACETATE [Suspect]
     Indication: PROSTATE CANCER
     Route: 048
     Dates: start: 20100409, end: 20100817
  6. LEUPROLIDE ACETATE [Suspect]
     Indication: PROSTATE CANCER
     Route: 065
     Dates: start: 20100409, end: 20100409
  7. LEUPROLIDE ACETATE [Suspect]
     Route: 065
     Dates: start: 20100702, end: 20100702
  8. URISPAS [Concomitant]
     Indication: URINARY TRACT INFECTION
     Route: 048
     Dates: start: 20100423

REACTIONS (2)
  - SUICIDAL IDEATION [None]
  - DEPRESSION [None]
